FAERS Safety Report 23441805 (Version 1)
Quarter: 2024Q1

REPORT INFORMATION
  Report Type: Spontaneous
  Country: US (occurrence: US)
  Receive Date: 20240125
  Receipt Date: 20240125
  Transmission Date: 20240410
  Serious: Yes (Death, Hospitalization)
  Sender: FDA-Public Use
  Company Number: US-MACLEODS PHARMACEUTICALS US LTD-MAC2024045496

PATIENT

DRUGS (6)
  1. NIACIN [Suspect]
     Active Substance: NIACIN
     Indication: Hyperlipidaemia
     Dosage: 2500 MILLIGRAM, QD (EXTENDED-RELEASE)
     Route: 065
  2. ICOSAPENT ETHYL [Concomitant]
     Active Substance: ICOSAPENT ETHYL
     Indication: Hyperlipidaemia
     Dosage: UNK
     Route: 065
  3. ASPIRIN [Concomitant]
     Active Substance: ASPIRIN
     Indication: Coronary artery disease
     Dosage: 81 MILLIGRAM
     Route: 065
  4. ASPIRIN [Concomitant]
     Active Substance: ASPIRIN
     Indication: Hypertension
  5. CARVEDILOL [Concomitant]
     Active Substance: CARVEDILOL
     Indication: Coronary artery disease
     Dosage: 3.125 MILLIGRAM
     Route: 065
  6. CARVEDILOL [Concomitant]
     Active Substance: CARVEDILOL
     Indication: Hypertension

REACTIONS (6)
  - Death [Fatal]
  - Cholestatic liver injury [Unknown]
  - Hepatic encephalopathy [Unknown]
  - Hepatotoxicity [Unknown]
  - Stupor [Unknown]
  - Hypotension [Unknown]
